FAERS Safety Report 20717381 (Version 1)
Quarter: 2022Q2

REPORT INFORMATION
  Report Type: Spontaneous
  Country: US (occurrence: US)
  Receive Date: 20220417
  Receipt Date: 20220417
  Transmission Date: 20220720
  Serious: No
  Sender: FDA-Public Use
  Company Number: US-SANOFI-01057510

PATIENT
  Sex: Female

DRUGS (9)
  1. DUPIXENT [Suspect]
     Active Substance: DUPILUMAB
     Indication: Asthma
     Dosage: 300 MG, QOW
  2. FASENRA [Concomitant]
     Active Substance: BENRALIZUMAB
  3. TYLENOL [Concomitant]
     Active Substance: ACETAMINOPHEN
  4. LEVOTHYROXINE SODIUM [Concomitant]
     Active Substance: LEVOTHYROXINE SODIUM
  5. NEBIVOLOL [Concomitant]
     Active Substance: NEBIVOLOL
  6. ALPRAZOLAM [Concomitant]
     Active Substance: ALPRAZOLAM
  7. EPLERENONE [Concomitant]
     Active Substance: EPLERENONE
  8. TORSEMIDE [Concomitant]
     Active Substance: TORSEMIDE
  9. LANSOPRAZOLE [Concomitant]
     Active Substance: LANSOPRAZOLE

REACTIONS (4)
  - Chest pain [Unknown]
  - Cough [Unknown]
  - Lung opacity [Unknown]
  - Product use issue [Unknown]
